FAERS Safety Report 23529372 (Version 1)
Quarter: 2024Q1

REPORT INFORMATION
  Report Type: Other
  Country: CN (occurrence: CN)
  Receive Date: 20240216
  Receipt Date: 20240216
  Transmission Date: 20240410
  Serious: Yes (Life-Threatening, Other)
  Sender: FDA-Public Use
  Company Number: CN-GE HEALTHCARE-2024CSU001436

PATIENT
  Age: 46 Year
  Sex: Female
  Weight: 60.9 kg

DRUGS (1)
  1. OMNISCAN [Suspect]
     Active Substance: GADODIAMIDE
     Indication: Pituitary scan
     Dosage: 15 ML, TOTAL
     Route: 041
     Dates: start: 20240205, end: 20240205

REACTIONS (3)
  - Hypotension [Recovering/Resolving]
  - Flushing [Recovering/Resolving]
  - Nausea [Recovering/Resolving]

NARRATIVE: CASE EVENT DATE: 20240205
